FAERS Safety Report 7971100-4 (Version None)
Quarter: 2011Q4

REPORT INFORMATION
  Report Type: 
  Country: None (occurrence: None)
  Receive Date: 20111212
  Receipt Date: 20111212
  Transmission Date: 20120403
  Serious: Yes (Other)
  Sender: FDA-Public Use
  Company Number: None

PATIENT
  Age: 32 Year
  Sex: Female
  Weight: 99.79 kg

DRUGS (1)
  1. CIPROFLOXACIN HCL [Suspect]
     Indication: HELICOBACTER INFECTION
     Dosage: 500 MG
     Route: 048
     Dates: start: 20111206, end: 20111207

REACTIONS (12)
  - OPTIC NEUROPATHY [None]
  - CONFUSIONAL STATE [None]
  - INSOMNIA [None]
  - HYPOAESTHESIA [None]
  - DECREASED APPETITE [None]
  - TINNITUS [None]
  - PANIC DISORDER [None]
  - HALLUCINATION [None]
  - DIZZINESS [None]
  - PARAESTHESIA [None]
  - NEUROPATHY PERIPHERAL [None]
  - ANXIETY [None]
